FAERS Safety Report 25816542 (Version 1)
Quarter: 2025Q3

REPORT INFORMATION
  Report Type: Spontaneous
  Country: SA (occurrence: SA)
  Receive Date: 20250918
  Receipt Date: 20250918
  Transmission Date: 20251020
  Serious: Yes (Hospitalization)
  Sender: NOVARTIS
  Company Number: SA-002147023-NVSC2025SA143545

PATIENT
  Sex: Female

DRUGS (1)
  1. KESIMPTA [Suspect]
     Active Substance: OFATUMUMAB
     Indication: Relapsing multiple sclerosis
     Route: 065

REACTIONS (3)
  - Pyrexia [Unknown]
  - Pruritus [Unknown]
  - Dizziness [Unknown]
